FAERS Safety Report 11677707 (Version 5)
Quarter: 2016Q1

REPORT INFORMATION
  Report Type: Spontaneous
  Country: US (occurrence: US)
  Receive Date: 20151028
  Receipt Date: 20160322
  Transmission Date: 20160525
  Serious: Yes (Other)
  Sender: FDA-Public Use
  Company Number: US-SA-2015SA156513

PATIENT
  Age: 15 Year
  Sex: Male

DRUGS (8)
  1. HUMAN RABIES IMMUNOGLOBULIN [Suspect]
     Active Substance: RABIES IMMUNE GLOBULIN (HUMAN)
     Indication: IMMUNISATION
     Route: 065
  2. HUMAN RABIES IMMUNOGLOBULIN [Suspect]
     Active Substance: RABIES IMMUNE GLOBULIN (HUMAN)
     Indication: IMMUNISATION
     Route: 030
     Dates: start: 20130622, end: 20130622
  3. RABIES VACCINE [Suspect]
     Active Substance: RABIES VACCINE
     Indication: IMMUNISATION
     Route: 030
  4. VERORAB [Suspect]
     Active Substance: RABIES VACCINE
     Indication: IMMUNISATION
     Route: 065
  5. DOXYCYCLINE. [Suspect]
     Active Substance: DOXYCYCLINE
     Indication: PRODUCT USED FOR UNKNOWN INDICATION
     Route: 065
  6. VERORAB [Suspect]
     Active Substance: RABIES VACCINE
     Indication: IMMUNISATION
     Route: 065
  7. HUMAN RABIES IMMUNOGLOBULIN [Suspect]
     Active Substance: RABIES IMMUNE GLOBULIN (HUMAN)
     Indication: IMMUNISATION
     Route: 065
  8. RABIES VACCINE [Suspect]
     Active Substance: RABIES VACCINE
     Indication: IMMUNISATION
     Route: 030

REACTIONS (5)
  - Contusion [Recovered/Resolved]
  - Purpura [Recovered/Resolved]
  - Oral disorder [Recovered/Resolved]
  - Petechiae [Recovered/Resolved]
  - Immune thrombocytopenic purpura [Recovered/Resolved]

NARRATIVE: CASE EVENT DATE: 20130705
